FAERS Safety Report 16756358 (Version 1)
Quarter: 2019Q4

REPORT INFORMATION
  Report Type: Spontaneous
  Country: US (occurrence: US)
  Receive Date: 20190829
  Receipt Date: 20190829
  Transmission Date: 20200122
  Serious: Yes (Hospitalization, Other)
  Sender: FDA-Public Use
  Company Number: None

PATIENT
  Age: 59 Year
  Sex: Female
  Weight: 108 kg

DRUGS (2)
  1. DILAUDID [Suspect]
     Active Substance: HYDROMORPHONE HYDROCHLORIDE
     Indication: PAIN
     Dosage: ?          QUANTITY:1 TABLET(S);?
     Route: 048
     Dates: start: 20010102, end: 20180711
  2. FENTANYL. [Suspect]
     Active Substance: FENTANYL
     Indication: PAIN
     Dosage: ?          QUANTITY:1 PATCH(ES);OTHER FREQUENCY:EVERY 72 HOURS;?
     Route: 062
     Dates: start: 19950102, end: 20180711

REACTIONS (9)
  - Loss of personal independence in daily activities [None]
  - Depression [None]
  - Patient dissatisfaction with treatment [None]
  - Therapy cessation [None]
  - Impaired quality of life [None]
  - Pain [None]
  - Nephrolithiasis [None]
  - Kidney infection [None]
  - Sleep deficit [None]

NARRATIVE: CASE EVENT DATE: 20180711
